FAERS Safety Report 13193686 (Version 1)
Quarter: 2017Q1

REPORT INFORMATION
  Report Type: Spontaneous
  Country: GB (occurrence: GB)
  Receive Date: 20170207
  Receipt Date: 20170207
  Transmission Date: 20170428
  Serious: Yes (Hospitalization, Other)
  Sender: FDA-Public Use
  Company Number: GB-TEVA-736852ACC

PATIENT
  Age: 66 Year
  Sex: Male

DRUGS (11)
  1. LACTULOSE. [Concomitant]
     Active Substance: LACTULOSE
  2. METFORMIN [Concomitant]
     Active Substance: METFORMIN HYDROCHLORIDE
  3. SITAGLIPTIN [Concomitant]
     Active Substance: SITAGLIPTIN
  4. GLICLAZIDE [Concomitant]
     Active Substance: GLICLAZIDE
  5. HYOSCINE BUTYLBROMIDE [Concomitant]
     Active Substance: BUTYLSCOPOLAMINE
  6. SIMVASTATIN. [Concomitant]
     Active Substance: SIMVASTATIN
  7. FOLIC ACID. [Concomitant]
     Active Substance: FOLIC ACID
  8. CARVEDILOL. [Suspect]
     Active Substance: CARVEDILOL
     Indication: PORTAL HYPERTENSION
     Dosage: 6.25 MILLIGRAM DAILY;
     Route: 048
     Dates: start: 201610
  9. GABAPENTIN. [Concomitant]
     Active Substance: GABAPENTIN
  10. CARVEDILOL. [Suspect]
     Active Substance: CARVEDILOL
     Indication: PORTAL HYPERTENSION
     Dosage: 3.125 MILLIGRAM DAILY;
     Route: 048
  11. OMEPRAZOLE. [Concomitant]
     Active Substance: OMEPRAZOLE

REACTIONS (3)
  - Fall [Recovering/Resolving]
  - Hypotension [Unknown]
  - Dizziness [Unknown]

NARRATIVE: CASE EVENT DATE: 20170114
